FAERS Safety Report 15098828 (Version 2)
Quarter: 2018Q2

REPORT INFORMATION
  Report Type: Spontaneous
  Country: FR (occurrence: FR)
  Receive Date: 20180630
  Receipt Date: 20180630
  Transmission Date: 20180711
  Serious: Yes (Hospitalization)
  Sender: FDA-Public Use
  Company Number: FR-TEVA-2018-FR-916439

PATIENT
  Age: 75 Year
  Sex: Male
  Weight: 87 kg

DRUGS (13)
  1. GENTAMICINE [Suspect]
     Active Substance: GENTAMICIN
     Indication: ENCEPHALITIS
     Dosage: 5 MG/KG DAILY;
     Route: 042
     Dates: start: 20180317, end: 20180323
  2. VESICARE 10 MG, COMPRIM? PELLICUL? [Concomitant]
     Dosage: 1 DOSAGE FORMS DAILY;
     Route: 048
     Dates: end: 20180327
  3. KARDEGIC [Concomitant]
     Active Substance: ASPIRIN DL-LYSINE
     Dosage: 1 DOSAGE FORMS DAILY;
     Route: 048
  4. ESOMEPRAZOLE [Concomitant]
     Active Substance: ESOMEPRAZOLE
     Route: 048
  5. SPECIAFOLDINE 5 MG, COMPRIM? [Concomitant]
     Active Substance: FOLIC ACID
     Dosage: WEDNESDAY
     Route: 048
  6. MACROGOL (?THER ST?ARYLIQUE DE) [Concomitant]
     Route: 048
  7. VENLAFAXINE [Concomitant]
     Active Substance: VENLAFAXINE HYDROCHLORIDE
     Dosage: 37.5 MILLIGRAM DAILY;
     Route: 048
  8. CLAFORAN [Concomitant]
     Active Substance: CEFOTAXIME SODIUM
     Dosage: UNKNOWN
     Route: 042
     Dates: start: 20180316, end: 20180318
  9. BETMIGA [Concomitant]
     Active Substance: MIRABEGRON
     Route: 048
  10. AMOXICILLIN. [Suspect]
     Active Substance: AMOXICILLIN
     Indication: ENCEPHALITIS
     Dosage: 12 GRAM DAILY;
     Route: 042
     Dates: start: 20180316, end: 20180327
  11. AUGMENTIN [Suspect]
     Active Substance: AMOXICILLIN\CLAVULANATE POTASSIUM
     Indication: PNEUMONIA ASPIRATION
     Dosage: 4 GRAM DAILY;
     Route: 048
     Dates: start: 20180319, end: 20180325
  12. DEXAMETHASONE. [Concomitant]
     Active Substance: DEXAMETHASONE
     Dates: start: 201803, end: 201803
  13. IMETH [Concomitant]
     Active Substance: METHOTREXATE SODIUM

REACTIONS (1)
  - Acute kidney injury [Recovered/Resolved]

NARRATIVE: CASE EVENT DATE: 20180327
